FAERS Safety Report 8036850-2 (Version None)
Quarter: 2012Q1

REPORT INFORMATION
  Report Type: 
  Country: None (occurrence: None)
  Receive Date: 20120111
  Receipt Date: 20120105
  Transmission Date: 20120608
  Serious: No
  Sender: FDA-Public Use
  Company Number: US-PFIZER INC-2012004276

PATIENT
  Sex: Female
  Weight: 137.42 kg

DRUGS (7)
  1. CYMBALTA [Suspect]
     Indication: DEPRESSION
     Dosage: 60 MG, 2X/DAY
     Dates: start: 20020101
  2. LYRICA [Suspect]
     Indication: NEUROPATHY PERIPHERAL
     Dosage: 300 MG, DAILY
  3. LYRICA [Suspect]
     Indication: FIBROMYALGIA
     Dosage: UNK,  2X/DAY
     Dates: start: 20020101
  4. LYRICA [Suspect]
     Dosage: 100 MG, DAILY
     Dates: start: 20111201, end: 20120101
  5. ACETAMINOPHEN AND HYDROCODONE BITARTRATE [Suspect]
     Indication: PAIN
     Dosage: 5/325 MG, UNK
     Dates: start: 20110101
  6. CYMBALTA [Suspect]
     Indication: FIBROMYALGIA
     Dosage: UNK
     Dates: end: 20111201
  7. INDERAL [Concomitant]
     Indication: MIGRAINE
     Dosage: UNK

REACTIONS (6)
  - DRUG INEFFECTIVE [None]
  - INSOMNIA [None]
  - WITHDRAWAL SYNDROME [None]
  - PAIN [None]
  - PAIN IN EXTREMITY [None]
  - CRYING [None]
